FAERS Safety Report 19136782 (Version 1)
Quarter: 2021Q2

REPORT INFORMATION
  Report Type: Spontaneous
  Country: RU (occurrence: RU)
  Receive Date: 20210414
  Receipt Date: 20210414
  Transmission Date: 20210717
  Serious: Yes (Death)
  Sender: FDA-Public Use
  Company Number: RU-ABBVIE-21K-251-3857539-00

PATIENT
  Age: 15 Year
  Sex: Female

DRUGS (2)
  1. VENETOCLAX. [Suspect]
     Active Substance: VENETOCLAX
     Indication: ACUTE MYELOID LEUKAEMIA RECURRENT
     Route: 048
  2. DECITABINUM [Concomitant]
     Indication: ACUTE MYELOID LEUKAEMIA RECURRENT

REACTIONS (2)
  - Off label use [Unknown]
  - COVID-19 pneumonia [Fatal]
